FAERS Safety Report 6132713-8 (Version None)
Quarter: 2009Q1

REPORT INFORMATION
  Report Type: 
  Country: None (occurrence: None)
  Receive Date: 20090324
  Receipt Date: 20090324
  Transmission Date: 20090719
  Serious: Yes (Hospitalization, Disabling, Other)
  Sender: FDA-Public Use
  Company Number: None

PATIENT
  Age: 52 Year
  Sex: Male
  Weight: 64.7 kg

DRUGS (2)
  1. GAMMAGARD LIQUID [Suspect]
     Indication: ANAEMIA
     Dosage: 60GM DAILY X 3 IV
     Route: 042
     Dates: start: 20090305, end: 20090315
  2. GAMMAGARD LIQUID [Suspect]
     Indication: HIV INFECTION
     Dosage: 5 GM DAILY X 3 IV
     Route: 042
     Dates: start: 20090313, end: 20090315

REACTIONS (2)
  - HAEMOLYSIS [None]
  - RENAL FAILURE ACUTE [None]
